FAERS Safety Report 5222550-0 (Version None)
Quarter: 2007Q1

REPORT INFORMATION
  Report Type: 
  Country: None (occurrence: None)
  Receive Date: 20070129
  Receipt Date: 20070118
  Transmission Date: 20070707
  Serious: Yes (Other)
  Sender: FDA-Public Use
  Company Number: CO-SHR-CO-2007-001779

PATIENT
  Age: 45 Year
  Sex: Female
  Weight: 63 kg

DRUGS (2)
  1. BETASERON [Suspect]
     Indication: MULTIPLE SCLEROSIS
     Dosage: 8 MIU, UNK
     Route: 058
     Dates: start: 20040301
  2. FLUXOTRIMETROL [Concomitant]
     Indication: HYPERSENSITIVITY
     Dates: start: 20000101

REACTIONS (3)
  - CARCINOID TUMOUR OF THE GASTROINTESTINAL TRACT [None]
  - GASTRITIS [None]
  - HIATUS HERNIA [None]
